FAERS Safety Report 4602714-7 (Version None)
Quarter: 2005Q1

REPORT INFORMATION
  Report Type: 
  Country: None (occurrence: None)
  Receive Date: 20050307
  Receipt Date: 20050224
  Transmission Date: 20050727
  Serious: Yes (Other)
  Sender: FDA-Public Use
  Company Number: 2005037532

PATIENT
  Age: 76 Year
  Sex: Female
  Weight: 81.6475 kg

DRUGS (13)
  1. LIPITOR [Suspect]
     Indication: BLOOD CHOLESTEROL INCREASED
     Dosage: 40 MG (40 MG, 1 IN 1 D), ORAL
     Route: 048
     Dates: start: 20040701
  2. GLUCOTROL [Suspect]
     Indication: DIABETES MELLITUS
     Dosage: 2.5 MG (2.5 MG, 1 IN 1 D), ORAL
     Route: 048
  3. GLIPIZIDE EXTENDED RELEASE (GLIPIZIDE) (GLIPIZIDE) [Suspect]
     Indication: DIABETES MELLITUS
     Dosage: 2.5 MG (2.5 MG, 1 IN 1 D), ORAL
     Route: 048
  4. DYAZIDE [Concomitant]
  5. ROFECOXIB [Concomitant]
  6. CLOPIDOGREL BISULFATE [Concomitant]
  7. NABUMETONE [Concomitant]
  8. ROSIGLITAZONE MALEATE [Concomitant]
  9. CARVEDILOL [Concomitant]
  10. SERETIDE MITE (FLUTICASONE PROPIONATE, SALMETEROL XINAFOATE) [Concomitant]
  11. FUROSEMIDE [Concomitant]
  12. POTASSIUM CHLORIDE [Concomitant]
  13. ASPIRIN [Concomitant]

REACTIONS (4)
  - BLOOD CHOLESTEROL INCREASED [None]
  - BODY HEIGHT DECREASED [None]
  - STENT PLACEMENT [None]
  - WEIGHT DECREASED [None]
